FAERS Safety Report 4372423-0 (Version None)
Quarter: 2004Q2

REPORT INFORMATION
  Report Type: 
  Country: None (occurrence: None)
  Receive Date: 20040526
  Receipt Date: 20040513
  Transmission Date: 20050107
  Serious: Yes (Other)
  Sender: FDA-Public Use
  Company Number: DE-JNJFOC-20040503084

PATIENT
  Sex: Female

DRUGS (1)
  1. RISPERDAL [Suspect]
     Indication: SCHIZOPHRENIA
     Dosage: 2 MG, IN 1 DAY, ORAL
     Route: 048
     Dates: start: 20000101

REACTIONS (2)
  - BREAST CANCER RECURRENT [None]
  - HYPERPROLACTINAEMIA [None]
